FAERS Safety Report 4891300-X (Version None)
Quarter: 2006Q1

REPORT INFORMATION
  Report Type: 
  Country: None (occurrence: None)
  Receive Date: 20060123
  Receipt Date: 20060110
  Transmission Date: 20060701
  Serious: Yes (Hospitalization)
  Sender: FDA-Public Use
  Company Number: 2006-137326-NL

PATIENT
  Age: 64 Year
  Sex: Male

DRUGS (6)
  1. MIRTAZAPINE [Suspect]
     Dosage: 45 MG QD ORAL
     Route: 048
     Dates: start: 20051020, end: 20051023
  2. DIAZEPAM [Suspect]
     Dosage: 10 MG QD ORAL
     Route: 048
     Dates: start: 20051020, end: 20051109
  3. ALFUZOSIN [Suspect]
     Dosage: 10 MG QD ORAL
     Route: 048
  4. HYDROCHLOROTHIAZIDE [Suspect]
     Dosage: 25 MG QD ORAL
     Route: 048
  5. PHENOBARBITAL TAB [Suspect]
     Dosage: 100 MG ORAL
     Route: 048
  6. RAMIPRIL [Suspect]
     Dosage: 2.5 MG QD ORAL
     Route: 048

REACTIONS (5)
  - DIZZINESS [None]
  - FALL [None]
  - LOSS OF CONSCIOUSNESS [None]
  - MALAISE [None]
  - VISION BLURRED [None]
